FAERS Safety Report 6221463-5 (Version None)
Quarter: 2009Q2

REPORT INFORMATION
  Report Type: 
  Country: None (occurrence: None)
  Receive Date: 20090610
  Receipt Date: 20090529
  Transmission Date: 20091009
  Serious: Yes (Other)
  Sender: FDA-Public Use
  Company Number: US-ELI_LILLY_AND_COMPANY-US200905005838

PATIENT
  Sex: Female

DRUGS (3)
  1. HUMATROPE [Suspect]
     Dosage: 0.6 MG, UNKNOWN
     Dates: start: 20050201
  2. HUMATROPE [Suspect]
     Dosage: 0.5 MG, UNK
     Dates: start: 20090501, end: 20090501
  3. SYNTHROID [Concomitant]
     Dosage: UNK, UNKNOWN

REACTIONS (4)
  - GLAUCOMA [None]
  - INCORRECT DOSE ADMINISTERED [None]
  - MACULAR DEGENERATION [None]
  - VISUAL ACUITY REDUCED [None]
